FAERS Safety Report 18865232 (Version 1)
Quarter: 2021Q1

REPORT INFORMATION
  Report Type: Report from Study
  Country: US (occurrence: US)
  Receive Date: 20210208
  Receipt Date: 20210208
  Transmission Date: 20210420
  Serious: Yes (Hospitalization, Other)
  Sender: FDA-Public Use
  Company Number: US-TEVA-2021-US-1865913

PATIENT
  Age: 72 Year
  Sex: Female

DRUGS (2)
  1. COPAXONE [Suspect]
     Active Substance: GLATIRAMER ACETATE
     Dates: start: 20210119
  2. COPAXONE [Suspect]
     Active Substance: GLATIRAMER ACETATE
     Dates: start: 20201230

REACTIONS (16)
  - Morganella infection [Unknown]
  - Injection site haemorrhage [Unknown]
  - Injection site indentation [Unknown]
  - Necrosis [Unknown]
  - Injection site haematoma [Unknown]
  - Injection site mass [Unknown]
  - Pseudomonas infection [Unknown]
  - Chills [Unknown]
  - Muscle spasms [Unknown]
  - Cold sweat [Unknown]
  - Wound secretion [Unknown]
  - Injection site erythema [Unknown]
  - Gait disturbance [Unknown]
  - Injection site bruising [Unknown]
  - Injection site discolouration [Unknown]
  - Cellulitis [Unknown]
